FAERS Safety Report 10414068 (Version 2)
Quarter: 2014Q3

REPORT INFORMATION
  Report Type: Spontaneous
  Country: US (occurrence: US)
  Receive Date: 20140827
  Receipt Date: 20140827
  Transmission Date: 20150326
  Serious: No
  Sender: FDA-Public Use
  Company Number: US-ASTRAZENECA-2013SE94552

PATIENT
  Age: 9 Year
  Sex: Male
  Weight: 32.7 kg

DRUGS (2)
  1. SYMBICORT [Suspect]
     Active Substance: BUDESONIDE\FORMOTEROL FUMARATE DIHYDRATE
     Indication: ASTHMA
     Dosage: 80/4.5, 2 PUFFS, TWO TIMES A DAY
     Route: 055
  2. ALBUTEROL. [Concomitant]
     Active Substance: ALBUTEROL
     Indication: COUGH
     Dosage: NOT REPORTED PRN

REACTIONS (6)
  - Cough [Unknown]
  - Productive cough [Unknown]
  - Intentional product misuse [Unknown]
  - Off label use [Unknown]
  - Wheezing [Unknown]
  - Drug administered to patient of inappropriate age [Unknown]
